APPROVED DRUG PRODUCT: FAMOTIDINE
Active Ingredient: FAMOTIDINE
Strength: 10MG/ML
Dosage Form/Route: INJECTABLE;INJECTION
Application: A215828 | Product #001
Applicant: ZYDUS PHARMACEUTICALS USA INC
Approved: Nov 22, 2022 | RLD: No | RS: No | Type: DISCN